FAERS Safety Report 7503676-5 (Version None)
Quarter: 2011Q2

REPORT INFORMATION
  Report Type: 
  Country: None (occurrence: None)
  Receive Date: 20110525
  Receipt Date: 20110519
  Transmission Date: 20111010
  Serious: Yes (Hospitalization, Other)
  Sender: FDA-Public Use
  Company Number: CH-US-EMD SERONO, INC.-7039696

PATIENT
  Sex: Female
  Weight: 57 kg

DRUGS (3)
  1. REBIF [Suspect]
     Indication: MULTIPLE SCLEROSIS
     Route: 058
  2. PANTOPRAZOLE [Concomitant]
     Indication: ABDOMINAL DISCOMFORT
     Route: 048
  3. NOVALGIN [Concomitant]
     Indication: BACK PAIN
     Route: 048
     Dates: start: 20100101

REACTIONS (9)
  - GENERAL PHYSICAL HEALTH DETERIORATION [None]
  - PNEUMONIA [None]
  - PETECHIAE [None]
  - LEUKOCYTOSIS [None]
  - HEREDITARY HAEMORRHAGIC TELANGIECTASIA [None]
  - OCULAR HYPERAEMIA [None]
  - PYREXIA [None]
  - CHRONIC OBSTRUCTIVE PULMONARY DISEASE [None]
  - COR PULMONALE [None]
